FAERS Safety Report 22299564 (Version 2)
Quarter: 2023Q2

REPORT INFORMATION
  Report Type: Spontaneous
  Country: RU (occurrence: RU)
  Receive Date: 20230509
  Receipt Date: 20230518
  Transmission Date: 20230721
  Serious: Yes (Hospitalization, Other)
  Sender: FDA-Public Use
  Company Number: RU-AMGEN-RUSSP2023076898

PATIENT
  Age: 44 Year

DRUGS (4)
  1. CINACALCET HYDROCHLORIDE [Suspect]
     Active Substance: CINACALCET HYDROCHLORIDE
     Indication: Hypercalcaemia of malignancy
     Dosage: 30 MILLIGRAM, QD
     Route: 065
  2. CINACALCET HYDROCHLORIDE [Suspect]
     Active Substance: CINACALCET HYDROCHLORIDE
     Dosage: 60 MILLIGRAM, QD
     Route: 065
  3. SEVELAMER [Concomitant]
     Active Substance: SEVELAMER
     Indication: Hypercalcaemia of malignancy
     Dosage: 800 MILLIGRAM, TID
     Route: 065
  4. SEVELAMER [Concomitant]
     Active Substance: SEVELAMER
     Dosage: 1600 MILLIGRAM, TID
     Route: 065

REACTIONS (5)
  - Parathyroid tumour malignant [Unknown]
  - Papillary thyroid cancer [Unknown]
  - Thyroid cancer metastatic [Unknown]
  - Paraesthesia [Unknown]
  - Body height decreased [Unknown]
